FAERS Safety Report 8189596-4 (Version None)
Quarter: 2012Q1

REPORT INFORMATION
  Report Type: 
  Country: None (occurrence: None)
  Receive Date: 20120305
  Receipt Date: 20120205
  Transmission Date: 20120608
  Serious: Yes (Other)
  Sender: FDA-Public Use
  Company Number: GB-DEXPHARM-20120038

PATIENT
  Age: 60 Year
  Sex: Female

DRUGS (1)
  1. DICLOFENAC SODIUM [Suspect]
     Indication: PAIN
     Dosage: 50 MG MILLGRAM(S) SEP. DOSAGES / INTERVAL: 3 IN 1 DAY ORAL
     Route: 048
     Dates: start: 20081106, end: 20081213

REACTIONS (3)
  - PLEURAL EFFUSION [None]
  - ATRIAL FIBRILLATION [None]
  - PERICARDITIS [None]
